FAERS Safety Report 5872705-7 (Version None)
Quarter: 2008Q3

REPORT INFORMATION
  Report Type: 
  Country: None (occurrence: None)
  Receive Date: 20080905
  Receipt Date: 20080828
  Transmission Date: 20090109
  Serious: Yes (Other)
  Sender: FDA-Public Use
  Company Number: US-PFIZER INC-2008072512

PATIENT
  Sex: Male
  Weight: 62.1 kg

DRUGS (4)
  1. LIPITOR [Suspect]
     Indication: BLOOD CHOLESTEROL INCREASED
  2. ASCORBIC ACID [Concomitant]
  3. ACETYLSALICYLIC ACID SRT [Concomitant]
  4. FOLIC ACID [Concomitant]

REACTIONS (3)
  - CARDIAC STRESS TEST ABNORMAL [None]
  - CHEST PAIN [None]
  - PHARMACEUTICAL PRODUCT COMPLAINT [None]
